FAERS Safety Report 8941314 (Version 2)
Quarter: 2012Q4

REPORT INFORMATION
  Report Type: 
  Country: US (occurrence: US)
  Receive Date: 20121121
  Receipt Date: 20121212
  Transmission Date: 20130627
  Serious: Yes (Death)
  Sender: FDA-Public Use
  Company Number: US-ASTELLAS-CID000000002093059

PATIENT
  Sex: Female

DRUGS (2)
  1. TARCEVA [Suspect]
     Indication: VULVAL CANCER
     Route: 048
     Dates: start: 20100902, end: 20101210
  2. TARCEVA [Suspect]
     Indication: VULVAL CANCER

REACTIONS (1)
  - Neoplasm malignant [Fatal]
